FAERS Safety Report 5871790-6 (Version None)
Quarter: 2008Q3

REPORT INFORMATION
  Report Type: 
  Country: None (occurrence: None)
  Receive Date: 20080902
  Receipt Date: 20080822
  Transmission Date: 20090109
  Serious: Yes (Hospitalization)
  Sender: FDA-Public Use
  Company Number: FR-1166915

PATIENT
  Age: 4 Day
  Sex: Male

DRUGS (2)
  1. ATROPINE SULFATE [Suspect]
     Indication: OPHTHALMOLOGICAL EXAMINATION
     Dosage: 1 GTT OU TWICE   OPHTHALMIC
     Route: 047
     Dates: start: 20080730, end: 20080730
  2. HOMATROPINE (HOMATROPINE) 1 % SOLUTION EYE DROPS, SOLUTION [Suspect]
     Dosage: OPHTHALMIC
     Route: 047

REACTIONS (3)
  - MEDICATION ERROR [None]
  - MYDRIASIS [None]
  - WRONG DRUG ADMINISTERED [None]
